FAERS Safety Report 6473764-3 (Version None)
Quarter: 2009Q4

REPORT INFORMATION
  Report Type: 
  Country: None (occurrence: None)
  Receive Date: 20091204
  Receipt Date: 20091126
  Transmission Date: 20100525
  Serious: Yes (Other)
  Sender: FDA-Public Use
  Company Number: AU-PFIZER INC-2009304016

PATIENT
  Age: 55 Year
  Sex: Female

DRUGS (2)
  1. SUTENT [Suspect]
     Indication: METASTATIC RENAL CELL CARCINOMA
     Dosage: 50 MG, 1X/DAY
  2. LAMIVUDINE [Concomitant]

REACTIONS (4)
  - FLANK PAIN [None]
  - HEPATITIS B [None]
  - HEPATITIS B POSITIVE [None]
  - JAUNDICE [None]
